FAERS Safety Report 15533338 (Version 3)
Quarter: 2018Q4

REPORT INFORMATION
  Report Type: Spontaneous
  Country: US (occurrence: US)
  Receive Date: 20181019
  Receipt Date: 20181123
  Transmission Date: 20190205
  Serious: No
  Sender: FDA-Public Use
  Company Number: US-B.I. PHARMACEUTICALS,INC./RIDGEFIELD-2018-BI-050418

PATIENT
  Sex: Female

DRUGS (1)
  1. SPIRIVA RESPIMAT [Suspect]
     Active Substance: TIOTROPIUM BROMIDE
     Indication: PRODUCT USED FOR UNKNOWN INDICATION
     Dosage: STRENGTH: 1.25 MCG;  ADMINISTRATION CORRECT? (NOT REPORTED) ?ACTION TAKEN WITH PRODUCT: NOT REPORTED
     Route: 055
     Dates: end: 2018

REACTIONS (3)
  - Product quality issue [Unknown]
  - Arthritis [Unknown]
  - Limb discomfort [Unknown]
